FAERS Safety Report 8477259-7 (Version None)
Quarter: 2012Q2

REPORT INFORMATION
  Report Type: 
  Country: None (occurrence: None)
  Receive Date: 20120629
  Receipt Date: 20120628
  Transmission Date: 20120825
  Serious: Yes (Other)
  Sender: FDA-Public Use
  Company Number: US-PFIZER INC-2012140353

PATIENT
  Sex: Female
  Weight: 45.351 kg

DRUGS (2)
  1. XALATAN [Suspect]
     Dosage: UNK
  2. XANAX [Suspect]
     Indication: NERVOUS SYSTEM DISORDER
     Dosage: UNK

REACTIONS (2)
  - MACULAR DEGENERATION [None]
  - INCREASED UPPER AIRWAY SECRETION [None]
